FAERS Safety Report 12345697 (Version 5)
Quarter: 2017Q1

REPORT INFORMATION
  Report Type: Spontaneous
  Country: US (occurrence: US)
  Receive Date: 20160509
  Receipt Date: 20170130
  Transmission Date: 20170428
  Serious: Yes (Hospitalization, Other)
  Sender: FDA-Public Use
  Company Number: US-ALEXION PHARMACEUTICALS INC-A201601018

PATIENT
  Age: 45 Year
  Sex: Male

DRUGS (3)
  1. SOLIRIS [Suspect]
     Active Substance: ECULIZUMAB
     Indication: PAROXYSMAL NOCTURNAL HAEMOGLOBINURIA
     Dosage: 600 MG, QW
     Route: 042
     Dates: start: 20160201, end: 20160222
  2. JAKAFI [Concomitant]
     Active Substance: RUXOLITINIB
     Indication: MYELOFIBROSIS
     Dosage: UNK
     Route: 065
  3. SOLIRIS [Suspect]
     Active Substance: ECULIZUMAB
     Dosage: 900 MG, Q2W
     Route: 042
     Dates: end: 20170112

REACTIONS (11)
  - Nausea [Unknown]
  - Vomiting [Unknown]
  - Hypersensitivity [Unknown]
  - White blood cell count decreased [Unknown]
  - Rash pruritic [Not Recovered/Not Resolved]
  - Graft versus host disease [Unknown]
  - Fatigue [Recovered/Resolved]
  - Blood test abnormal [Recovered/Resolved]
  - Fatigue [Unknown]
  - Iron overload [Not Recovered/Not Resolved]
  - Haemoglobin decreased [Unknown]

NARRATIVE: CASE EVENT DATE: 20160425
